FAERS Safety Report 4676294-4 (Version None)
Quarter: 2005Q2

REPORT INFORMATION
  Report Type: 
  Country: None (occurrence: None)
  Receive Date: 20050527
  Receipt Date: 20050211
  Transmission Date: 20051028
  Serious: No
  Sender: FDA-Public Use
  Company Number: US-GLAXOSMITHKLINE-A0545803A

PATIENT
  Age: 51 Year
  Sex: Female
  Weight: 52.7 kg

DRUGS (2)
  1. WELLBUTRIN XL [Suspect]
     Dosage: 300MG PER DAY
     Route: 048
     Dates: start: 20050107, end: 20050124
  2. NICOTINE [Concomitant]
     Route: 065

REACTIONS (3)
  - CRYING [None]
  - INSOMNIA [None]
  - TINNITUS [None]
